FAERS Safety Report 5679440-9 (Version None)
Quarter: 2008Q1

REPORT INFORMATION
  Report Type: 
  Country: None (occurrence: None)
  Receive Date: 20080325
  Receipt Date: 20080313
  Transmission Date: 20080703
  Serious: Yes (Other)
  Sender: FDA-Public Use
  Company Number: SE-PFIZER INC-2008022949

PATIENT
  Age: 42 Year
  Sex: Female

DRUGS (3)
  1. CHAMPIX [Suspect]
     Indication: SMOKING CESSATION THERAPY
     Route: 048
  2. ZOLPIDEM TARTRATE [Concomitant]
     Dosage: DAILY DOSE:10MG
  3. DIAZEPAM [Concomitant]

REACTIONS (2)
  - ABNORMAL DREAMS [None]
  - GENERALISED ANXIETY DISORDER [None]
